FAERS Safety Report 4313715-0 (Version None)
Quarter: 2004Q1

REPORT INFORMATION
  Report Type: 
  Country: None (occurrence: None)
  Receive Date: 20040305
  Receipt Date: 20040223
  Transmission Date: 20041129
  Serious: Yes (Hospitalization)
  Sender: FDA-Public Use
  Company Number: 2003126015

PATIENT
  Sex: Male

DRUGS (1)
  1. TIKOSYN [Suspect]
     Indication: ILL-DEFINED DISORDER
     Dosage: 500 MCG

REACTIONS (3)
  - DRUG LEVEL DECREASED [None]
  - TINEA CRURIS [None]
  - TINEA PEDIS [None]
